FAERS Safety Report 8276052-8 (Version None)
Quarter: 2012Q2

REPORT INFORMATION
  Report Type: 
  Country: None (occurrence: None)
  Receive Date: 20120412
  Receipt Date: 20120410
  Transmission Date: 20120825
  Serious: No
  Sender: FDA-Public Use
  Company Number: US-BAYER-2012-035072

PATIENT
  Sex: Male

DRUGS (2)
  1. STAXYN [Suspect]
     Dosage: 10 MG, UNK
     Route: 048
     Dates: start: 20120409
  2. STAXYN [Suspect]
     Indication: ERECTILE DYSFUNCTION
     Dosage: 10 MG, UNK
     Route: 048
     Dates: start: 20120101

REACTIONS (1)
  - ERECTILE DYSFUNCTION [None]
